FAERS Safety Report 14025571 (Version 2)
Quarter: 2017Q4

REPORT INFORMATION
  Report Type: Spontaneous
  Country: US (occurrence: US)
  Receive Date: 20170929
  Receipt Date: 20171024
  Transmission Date: 20180321
  Serious: No
  Sender: FDA-Public Use
  Company Number: US-GLAXOSMITHKLINE-US2017GSK150193

PATIENT
  Sex: Male
  Weight: 90.7 kg

DRUGS (1)
  1. TANZEUM [Suspect]
     Active Substance: ALBIGLUTIDE
     Indication: DIABETES MELLITUS
     Dosage: 50 MG, WE
     Route: 055

REACTIONS (2)
  - Wrong technique in device usage process [Unknown]
  - Device leakage [Unknown]
